FAERS Safety Report 9390451 (Version 2)
Quarter: 2013Q2

REPORT INFORMATION
  Report Type: Spontaneous
  Country: US (occurrence: None)
  Receive Date: 20130620
  Receipt Date: 20130628
  Transmission Date: 20140414
  Serious: Yes (Hospitalization)
  Sender: FDA-Public Use
  Company Number: 2013PROUSA02876

PATIENT
  Age: 83 Year
  Sex: Male
  Weight: 108.8 kg

DRUGS (1)
  1. PROVENGE (SIPULEUCEL-T) SUSPENSION, 250ML [Suspect]
     Indication: PROSTATE CANCER METASTATIC
     Dosage: SINGLE
     Route: 042
     Dates: start: 20130524, end: 20130524

REACTIONS (6)
  - Pulmonary congestion [None]
  - Chills [None]
  - Pyrexia [None]
  - Cough [None]
  - Bacterial infection [None]
  - Device related infection [None]
